FAERS Safety Report 10776627 (Version 1)
Quarter: 2015Q1

REPORT INFORMATION
  Report Type: Spontaneous
  Country: US (occurrence: US)
  Receive Date: 20150209
  Receipt Date: 20150209
  Transmission Date: 20150721
  Serious: No
  Sender: FDA-Public Use
  Company Number: US-GLAXOSMITHKLINE-A1067154A

PATIENT

DRUGS (6)
  1. IMITREX [Suspect]
     Active Substance: SUMATRIPTAN\SUMATRIPTAN SUCCINATE
     Indication: MIGRAINE
     Route: 065
  2. ZEGERID [Concomitant]
     Active Substance: OMEPRAZOLE\SODIUM BICARBONATE
  3. ENTOCORT [Concomitant]
     Active Substance: BUDESONIDE
  4. BENTYL [Concomitant]
     Active Substance: DICYCLOMINE HYDROCHLORIDE
  5. PENTASA [Concomitant]
     Active Substance: MESALAMINE
  6. HUMIRA [Suspect]
     Active Substance: ADALIMUMAB
     Indication: CROHN^S DISEASE
     Dosage: 40 MG INJECTION EVERY 2 WEEKS
     Route: 042
     Dates: start: 20140109

REACTIONS (6)
  - Burning sensation [Unknown]
  - Migraine [Unknown]
  - Limb injury [Unknown]
  - Rash pustular [Unknown]
  - Nodule [Unknown]
  - Drug ineffective [Unknown]

NARRATIVE: CASE EVENT DATE: 201401
